FAERS Safety Report 23047721 (Version 8)
Quarter: 2025Q4

REPORT INFORMATION
  Report Type: Report from Study
  Country: US (occurrence: US)
  Receive Date: 20231010
  Receipt Date: 20251118
  Transmission Date: 20260117
  Serious: Yes (Hospitalization)
  Sender: ABBVIE
  Company Number: US-ABBVIE-5439750

PATIENT
  Age: 83 Year
  Sex: Female
  Weight: 64.863 kg

DRUGS (6)
  1. SKYRIZI [Suspect]
     Active Substance: RISANKIZUMAB-RZAA
     Indication: Crohn^s disease
     Route: 058
     Dates: start: 20231129
  2. SKYRIZI [Suspect]
     Active Substance: RISANKIZUMAB-RZAA
     Indication: Crohn^s disease
     Dosage: FORM STRENGTH: 360 MG?SOLUTION FOR INJECTION IN PRE-FILLED INJECTOR
     Route: 058
     Dates: start: 202401
  3. SKYRIZI [Suspect]
     Active Substance: RISANKIZUMAB-RZAA
     Dosage: FORM STRENGTH: 360 MG?SOLUTION FOR INJECTION IN PRE-FILLED INJECTOR
     Route: 058
  4. SKYRIZI [Suspect]
     Active Substance: RISANKIZUMAB-RZAA
     Indication: Crohn^s disease
     Dosage: FORM STRENGTH: 600 MILLIGRAM
     Route: 042
     Dates: start: 20230919, end: 20231129
  5. ZOLPIDEM TARTRATE [Concomitant]
     Active Substance: ZOLPIDEM TARTRATE
     Indication: Sleep disorder
  6. CLORAZEPATE DIPOTASSIUM [Concomitant]
     Active Substance: CLORAZEPATE DIPOTASSIUM
     Indication: Anxiety

REACTIONS (12)
  - Gastrointestinal obstruction [Unknown]
  - Abdominal adhesions [Unknown]
  - Colectomy [Recovered/Resolved with Sequelae]
  - Post procedural complication [Recovered/Resolved]
  - Abdominal pain upper [Recovered/Resolved]
  - Hernia [Unknown]
  - Procedural pain [Recovering/Resolving]
  - Colectomy [Unknown]
  - Diarrhoea [Unknown]
  - Urinary tract infection [Unknown]
  - Weight gain poor [Recovering/Resolving]
  - Alopecia [Unknown]

NARRATIVE: CASE EVENT DATE: 20230101
